FAERS Safety Report 8567216-4 (Version None)
Quarter: 2012Q3

REPORT INFORMATION
  Report Type: 
  Country: None (occurrence: None)
  Receive Date: 20120803
  Receipt Date: 20111122
  Transmission Date: 20120928
  Serious: No
  Sender: FDA-Public Use
  Company Number: US-ABBOTT-11P-163-0875581-00

PATIENT
  Sex: Male
  Weight: 73.548 kg

DRUGS (1)
  1. NIASPAN [Suspect]
     Indication: BLOOD CHOLESTEROL INCREASED
     Route: 048
     Dates: start: 20111101, end: 20111101

REACTIONS (3)
  - FLUSHING [None]
  - PARAESTHESIA [None]
  - FEELING HOT [None]
